FAERS Safety Report 6606460-X (Version None)
Quarter: 2010Q1

REPORT INFORMATION
  Report Type: 
  Country: None (occurrence: None)
  Receive Date: 20100226
  Receipt Date: 20100215
  Transmission Date: 20100710
  Serious: Yes (Hospitalization, Other)
  Sender: FDA-Public Use
  Company Number: PHEH2008US00461

PATIENT
  Sex: Male
  Weight: 136.6 kg

DRUGS (4)
  1. AREDIA [Suspect]
     Dosage: UNK
     Dates: start: 20000202, end: 20040101
  2. ZOMETA [Suspect]
     Dosage: UNK
     Dates: start: 20040101, end: 20050101
  3. INH [Concomitant]
     Dosage: UNK
  4. PREDNISONE [Concomitant]

REACTIONS (15)
  - ANHEDONIA [None]
  - ANXIETY [None]
  - AZOTAEMIA [None]
  - BONE DISORDER [None]
  - FISTULA [None]
  - GOITRE [None]
  - HEPATOMEGALY [None]
  - INJURY [None]
  - JAW OPERATION [None]
  - MAXILLOFACIAL OPERATION [None]
  - OSTEONECROSIS [None]
  - PAIN [None]
  - SUTURE INSERTION [None]
  - SWELLING [None]
  - TOOTH EXTRACTION [None]
